FAERS Safety Report 12280376 (Version 1)
Quarter: 2016Q2

REPORT INFORMATION
  Report Type: Spontaneous
  Country: BE (occurrence: BE)
  Receive Date: 20160419
  Receipt Date: 20160419
  Transmission Date: 20160815
  Serious: Yes (Other)
  Sender: FDA-Public Use
  Company Number: BE-PFIZER INC-2015138196

PATIENT
  Age: 63 Year
  Sex: Female

DRUGS (2)
  1. DENOSUMAB [Concomitant]
     Active Substance: DENOSUMAB
     Dosage: UNK
     Dates: start: 20150212
  2. SUTENT [Suspect]
     Active Substance: SUNITINIB MALATE
     Indication: RENAL CELL CARCINOMA
     Dosage: 50 MG, 2 WEEKS ON / 1 WEEK OFF
     Route: 048
     Dates: start: 20150128

REACTIONS (7)
  - Orbital oedema [Unknown]
  - Proteinuria [Unknown]
  - Nephrotic syndrome [Unknown]
  - Palmar-plantar erythrodysaesthesia syndrome [Unknown]
  - Left ventricular dysfunction [Recovered/Resolved]
  - Haematuria [Unknown]
  - Hypertension [Unknown]

NARRATIVE: CASE EVENT DATE: 20150212
